FAERS Safety Report 6599737-8 (Version None)
Quarter: 2010Q1

REPORT INFORMATION
  Report Type: 
  Country: None (occurrence: None)
  Receive Date: 20100224
  Receipt Date: 20100216
  Transmission Date: 20100710
  Serious: Yes (Hospitalization)
  Sender: FDA-Public Use
  Company Number: US-ELI_LILLY_AND_COMPANY-US201002004565

PATIENT
  Sex: Male

DRUGS (3)
  1. HUMALOG [Suspect]
     Indication: DIABETES MELLITUS
     Dosage: UNK, AS NEEDED
     Dates: start: 20081101
  2. HUMALOG [Suspect]
     Dosage: UNK, AS NEEDED
     Dates: start: 20081101
  3. LANTUS [Concomitant]
     Dosage: UNK, EACH EVENING

REACTIONS (5)
  - BLOOD GLUCOSE INCREASED [None]
  - DYSPEPSIA [None]
  - INTENTIONAL DRUG MISUSE [None]
  - MUSCLE SPASMS [None]
  - SOMNOLENCE [None]
